FAERS Safety Report 4331119-1 (Version None)
Quarter: 2004Q1

REPORT INFORMATION
  Report Type: 
  Country: None (occurrence: None)
  Receive Date: 20040331
  Receipt Date: 20040317
  Transmission Date: 20041129
  Serious: Yes (Other)
  Sender: FDA-Public Use
  Company Number: USA040362394

PATIENT
  Age: 69 Year
  Sex: Female

DRUGS (3)
  1. EVISTA [Suspect]
     Indication: OSTEOPOROSIS
  2. MIACALCIN [Concomitant]
  3. DURAGESIC [Concomitant]

REACTIONS (2)
  - COMPRESSION FRACTURE [None]
  - TIBIA FRACTURE [None]
